FAERS Safety Report 9173186 (Version 1)
Quarter: 2013Q1

REPORT INFORMATION
  Report Type: Report from Study
  Country: PL (occurrence: PL)
  Receive Date: 20130320
  Receipt Date: 20130320
  Transmission Date: 20140127
  Serious: Yes (Hospitalization)
  Sender: FDA-Public Use
  Company Number: PL-JNJFOC-20110813212

PATIENT
  Age: 53 Year
  Sex: Female
  Weight: 59 kg

DRUGS (4)
  1. GOLIMUMAB [Suspect]
     Indication: RHEUMATOID ARTHRITIS
     Route: 042
     Dates: start: 20110826
  2. GOLIMUMAB [Suspect]
     Indication: RHEUMATOID ARTHRITIS
     Route: 042
     Dates: start: 20110706
  3. GOLIMUMAB [Suspect]
     Indication: RHEUMATOID ARTHRITIS
     Route: 042
     Dates: start: 20100707
  4. DEFLAZACORT [Concomitant]
     Indication: ARTHRITIS
     Route: 048
     Dates: start: 20090414

REACTIONS (3)
  - Concussion [Recovered/Resolved]
  - Contusion [Recovered/Resolved]
  - Dislocation of vertebra [Recovered/Resolved]
